FAERS Safety Report 9222938 (Version 1)
Quarter: 2013Q1

REPORT INFORMATION
  Report Type: Spontaneous
  Country: US (occurrence: None)
  Receive Date: 20120914
  Receipt Date: 20120914
  Transmission Date: 20140127
  Serious: Yes (Hospitalization, Other)
  Sender: FDA-Public Use
  Company Number: JPI-P-019945

PATIENT
  Age: 77 Year
  Sex: Female
  Weight: 61 kg

DRUGS (5)
  1. XYREM (500 MILLIGRAM/MILLILITERS, SOLUTION) (SODIUM OXYBATE) [Suspect]
     Indication: TREMOR
     Route: 048
     Dates: start: 20101104
  2. PRIMIDONE [Concomitant]
  3. PROPRANOLOL HYDROCHLORIDE [Concomitant]
  4. ARIPIPRAZOLE [Concomitant]
  5. OXAZEPAM [Concomitant]

REACTIONS (2)
  - Overdose [None]
  - Depressed level of consciousness [None]
